FAERS Safety Report 4869314-5 (Version None)
Quarter: 2005Q4

REPORT INFORMATION
  Report Type: 
  Country: None (occurrence: None)
  Receive Date: 20051227
  Receipt Date: 20051214
  Transmission Date: 20060501
  Serious: Yes (Life-Threatening, Hospitalization)
  Sender: FDA-Public Use
  Company Number: 001#1#2005-00340

PATIENT
  Age: 72 Year
  Sex: Male

DRUGS (2)
  1. ALPROSTADIL [Suspect]
     Indication: ISCHAEMIA
     Dosage: 60 MCG INTRAVENOUS
     Route: 042
     Dates: start: 20051117, end: 20051118
  2. SODIUM CHLORIDE [Suspect]
     Indication: ISCHAEMIA
     Dosage: 250 ML INTRAVENOUS
     Route: 042
     Dates: start: 20051117, end: 20051118

REACTIONS (2)
  - CHEST PAIN [None]
  - LOSS OF CONSCIOUSNESS [None]
